FAERS Safety Report 8910994 (Version 2)
Quarter: 2013Q1

REPORT INFORMATION
  Report Type: Spontaneous
  Country: US (occurrence: US)
  Receive Date: 20121116
  Receipt Date: 20130222
  Transmission Date: 20140127
  Serious: Yes (Death, Hospitalization)
  Sender: FDA-Public Use
  Company Number: US-SANOFI-AVENTIS-2012SA082170

PATIENT
  Age: 64 Year
  Sex: Female

DRUGS (2)
  1. HYDROXYCHLOROQUINE SULFATE [Suspect]
     Indication: RHEUMATOID ARTHRITIS
     Route: 065
  2. HYDROXYCHLOROQUINE SULFATE [Suspect]
     Indication: RHEUMATOID ARTHRITIS
     Route: 065

REACTIONS (15)
  - Cardiomyopathy [Fatal]
  - Cardiomegaly [Fatal]
  - Biopsy heart abnormal [Fatal]
  - Respiratory failure [Fatal]
  - Hypoxia [Fatal]
  - Myopathy [Fatal]
  - Muscular weakness [Fatal]
  - Blood creatine phosphokinase increased [Fatal]
  - Troponin I increased [Fatal]
  - Weight decreased [Fatal]
  - Biopsy muscle abnormal [Fatal]
  - Myocardial infarction [Fatal]
  - Cardiac failure congestive [Fatal]
  - Dyspnoea exertional [Fatal]
  - Oedema peripheral [Fatal]
